FAERS Safety Report 7700016-3 (Version None)
Quarter: 2011Q3

REPORT INFORMATION
  Report Type: 
  Country: None (occurrence: None)
  Receive Date: 20110822
  Receipt Date: 20110810
  Transmission Date: 20111222
  Serious: Yes (Hospitalization)
  Sender: FDA-Public Use
  Company Number: JP-JNJFOC-20101002736

PATIENT
  Age: 51 Year
  Sex: Female
  Weight: 56 kg

DRUGS (5)
  1. REMICADE [Suspect]
     Dosage: DOSE 2 AND 3 ADMINISTERED ON UNKNOWN DATES
     Route: 042
     Dates: start: 20100526
  2. REMICADE [Suspect]
     Dosage: DOSE 2 AND 3 ADMINISTERED ON UNKNOWN DATES
     Route: 042
     Dates: start: 20100623
  3. REMICADE [Suspect]
     Dosage: 4TH INFUSION
     Route: 042
     Dates: start: 20100818
  4. DOVONEX [Concomitant]
     Indication: PSORIASIS
     Dates: end: 20100910
  5. REMICADE [Suspect]
     Indication: PSORIASIS
     Route: 042
     Dates: start: 20100510

REACTIONS (3)
  - WEIGHT DECREASED [None]
  - PYREXIA [None]
  - LYMPHADENITIS [None]
